FAERS Safety Report 7398865-7 (Version None)
Quarter: 2011Q2

REPORT INFORMATION
  Report Type: 
  Country: None (occurrence: None)
  Receive Date: 20110404
  Receipt Date: 20110404
  Transmission Date: 20111010
  Serious: Yes (Hospitalization)
  Sender: FDA-Public Use
  Company Number: None

PATIENT
  Age: 23 Year
  Sex: Female

DRUGS (4)
  1. TESTOSTERONE [Concomitant]
  2. IMMUNE GLOBULIN IV NOS [Suspect]
     Indication: MYASTHENIA GRAVIS
     Dosage: ONE TIME IV DRIP
     Route: 041
     Dates: start: 20110303, end: 20110303
  3. IMMUNE GLOBULIN IV NOS [Suspect]
     Indication: DISEASE RECURRENCE
     Dosage: ONE TIME IV DRIP
     Route: 041
     Dates: start: 20110303, end: 20110303
  4. VITAMIN B-12 SUPPLEMENTS [Concomitant]

REACTIONS (7)
  - TRANSMISSION OF AN INFECTIOUS AGENT VIA A MEDICINAL PRODUCT [None]
  - HEADACHE [None]
  - PHOTOPHOBIA [None]
  - MENINGITIS ASEPTIC [None]
  - NAUSEA [None]
  - NECK PAIN [None]
  - MUSCULOSKELETAL STIFFNESS [None]
